FAERS Safety Report 8580209-6 (Version None)
Quarter: 2012Q3

REPORT INFORMATION
  Report Type: 
  Country: None (occurrence: None)
  Receive Date: 20120808
  Receipt Date: 20120803
  Transmission Date: 20120928
  Serious: Yes (Other)
  Sender: FDA-Public Use
  Company Number: US-PFIZER INC-2012189439

PATIENT
  Age: 75 Year
  Sex: Female
  Weight: 77 kg

DRUGS (7)
  1. LIPITOR [Suspect]
     Indication: BLOOD CHOLESTEROL INCREASED
     Dosage: 40 MG, 1X/DAY
     Route: 048
  2. LIPITOR [Suspect]
     Dosage: UNK
     Route: 048
  3. LYRICA [Suspect]
     Indication: FIBROMYALGIA
     Dosage: 75 MG, 1X/DAY
     Route: 048
  4. LYRICA [Suspect]
     Dosage: UNK
     Route: 048
  5. CELEBREX [Suspect]
     Indication: ARTHRITIS
     Dosage: 100 MG, 1X/DAY
     Route: 048
  6. CELEBREX [Suspect]
     Dosage: UNK
     Route: 048
  7. METFORMIN [Concomitant]
     Indication: DIABETES MELLITUS
     Dosage: UNK

REACTIONS (2)
  - DRUG ADMINISTRATION ERROR [None]
  - ARTHROPATHY [None]
